FAERS Safety Report 17941400 (Version 4)
Quarter: 2021Q4

REPORT INFORMATION
  Report Type: Spontaneous
  Country: DE (occurrence: DE)
  Receive Date: 20200624
  Receipt Date: 20211019
  Transmission Date: 20220304
  Serious: Yes (Death, Other)
  Sender: FDA-Public Use
  Company Number: NVSC2020DE176145

PATIENT

DRUGS (18)
  1. MYCOPHENOLATE MOFETIL [Suspect]
     Active Substance: MYCOPHENOLATE MOFETIL
     Indication: Prophylaxis against graft versus host disease
     Dosage: UNK UNK, QD
     Route: 065
  2. CYCLOSPORINE [Suspect]
     Active Substance: CYCLOSPORINE
     Indication: Prophylaxis against graft versus host disease
     Dosage: QD; TARGET LEVEL OF 200 NG/ML/DAY
     Route: 065
  3. FLUDARABINE PHOSPHATE [Suspect]
     Active Substance: FLUDARABINE PHOSPHATE
     Indication: Allogenic stem cell transplantation
     Dosage: UNK, 8 CYCLES
     Route: 065
  4. FLUDARABINE PHOSPHATE [Suspect]
     Active Substance: FLUDARABINE PHOSPHATE
     Indication: Bone marrow conditioning regimen
  5. FLUDARABINE PHOSPHATE [Suspect]
     Active Substance: FLUDARABINE PHOSPHATE
     Indication: Immunosuppressant drug therapy
  6. FLUDARABINE PHOSPHATE [Suspect]
     Active Substance: FLUDARABINE PHOSPHATE
     Indication: T-cell prolymphocytic leukaemia
  7. CYCLOPHOSPHAMIDE [Suspect]
     Active Substance: CYCLOPHOSPHAMIDE
     Indication: Allogenic stem cell transplantation
     Dosage: UNK, 8 CYCLES
     Route: 065
  8. CYCLOPHOSPHAMIDE [Suspect]
     Active Substance: CYCLOPHOSPHAMIDE
     Indication: Bone marrow conditioning regimen
  9. CYCLOPHOSPHAMIDE [Suspect]
     Active Substance: CYCLOPHOSPHAMIDE
     Indication: Immunosuppressant drug therapy
  10. CYCLOPHOSPHAMIDE [Suspect]
     Active Substance: CYCLOPHOSPHAMIDE
     Indication: T-cell prolymphocytic leukaemia
  11. BUSULFAN [Suspect]
     Active Substance: BUSULFAN
     Indication: Allogenic stem cell transplantation
     Dosage: UNK, 8 CYCLES
     Route: 065
  12. BUSULFAN [Suspect]
     Active Substance: BUSULFAN
     Indication: Bone marrow conditioning regimen
  13. BUSULFAN [Suspect]
     Active Substance: BUSULFAN
     Indication: Immunosuppressant drug therapy
  14. BUSULFAN [Suspect]
     Active Substance: BUSULFAN
     Indication: T-cell prolymphocytic leukaemia
  15. ALEMTUZUMAB [Suspect]
     Active Substance: ALEMTUZUMAB
     Indication: Allogenic stem cell transplantation
     Dosage: 3 MG, Q48H (IN THE FIRST WEEK)
     Route: 041
  16. ALEMTUZUMAB [Suspect]
     Active Substance: ALEMTUZUMAB
     Indication: Immunosuppressant drug therapy
     Dosage: 10 MG, Q48H (IN THE FIRST WEEK)
     Route: 041
  17. ALEMTUZUMAB [Suspect]
     Active Substance: ALEMTUZUMAB
     Indication: T-cell prolymphocytic leukaemia
     Dosage: 30 MG, Q48H (IN THE FIRST WEEK)
     Route: 041
  18. ALEMTUZUMAB [Suspect]
     Active Substance: ALEMTUZUMAB
     Dosage: 30 MG/48 HOURS WEEKLY
     Route: 041

REACTIONS (4)
  - Septic shock [Fatal]
  - T-cell prolymphocytic leukaemia [Fatal]
  - Chronic graft versus host disease [Unknown]
  - Product use in unapproved indication [Unknown]
